FAERS Safety Report 20517570 (Version 1)
Quarter: 2022Q1

REPORT INFORMATION
  Report Type: Spontaneous
  Country: US (occurrence: None)
  Receive Date: 20220224
  Receipt Date: 20220224
  Transmission Date: 20220423
  Serious: Yes (unspecified)
  Sender: FDA-Public Use
  Company Number: None

PATIENT
  Age: 68 Year
  Sex: Male
  Weight: 78 kg

DRUGS (1)
  1. HYDROCHLOROTHIAZIDE [Suspect]
     Active Substance: HYDROCHLOROTHIAZIDE
     Indication: Hypertension
     Dosage: 25 MG EVERY DAY PO?
     Route: 048
     Dates: start: 20211119, end: 20211121

REACTIONS (5)
  - Epistaxis [None]
  - Faeces discoloured [None]
  - Blood chloride decreased [None]
  - Hyponatraemia [None]
  - Leukocytosis [None]

NARRATIVE: CASE EVENT DATE: 20211119
